FAERS Safety Report 23567189 (Version 2)
Quarter: 2024Q2

REPORT INFORMATION
  Report Type: Spontaneous
  Country: US (occurrence: US)
  Receive Date: 20240226
  Receipt Date: 20240422
  Transmission Date: 20240716
  Serious: Yes (Hospitalization)
  Sender: FDA-Public Use
  Company Number: US-BAYER-2024A028204

PATIENT
  Age: 82 Year
  Sex: Male

DRUGS (22)
  1. ADEMPAS [Suspect]
     Active Substance: RIOCIGUAT
     Indication: Pulmonary hypertension
     Dosage: 2.5 MG, TID
     Dates: start: 20221004
  2. OPSUMIT [Suspect]
     Active Substance: MACITENTAN
  3. ELIQUIS [Concomitant]
     Active Substance: APIXABAN
  4. ASPIRIN [Concomitant]
     Active Substance: ASPIRIN
  5. EMPAGLIFLOZIN [Concomitant]
     Active Substance: EMPAGLIFLOZIN
  6. ALLOPURINOL [Concomitant]
     Active Substance: ALLOPURINOL
  7. HYDROXYCHLOROQUINE [Concomitant]
     Active Substance: HYDROXYCHLOROQUINE
  8. MVI-ADULT [Concomitant]
  9. VITAMIN D3 [Concomitant]
     Active Substance: CHOLECALCIFEROL
  10. FOLIC ACID [Concomitant]
     Active Substance: FOLIC ACID
  11. TORSEMIDE [Concomitant]
     Active Substance: TORSEMIDE
  12. POTASSIUM CHLORIDE [Concomitant]
     Active Substance: POTASSIUM CHLORIDE
  13. APIXABAN [Concomitant]
     Active Substance: APIXABAN
  14. GABAPENTIN [Concomitant]
     Active Substance: GABAPENTIN
  15. OXYGEN [Concomitant]
     Active Substance: OXYGEN
  16. PANTOPRAZOLE [Concomitant]
     Active Substance: PANTOPRAZOLE
  17. FERROUS SULFATE [Concomitant]
     Active Substance: FERROUS SULFATE
  18. DUONEB [Concomitant]
     Active Substance: ALBUTEROL SULFATE\IPRATROPIUM BROMIDE
  19. METHOTREXATE [Concomitant]
     Active Substance: METHOTREXATE
  20. ATORVASTATIN [Concomitant]
     Active Substance: ATORVASTATIN
  21. AMIODARONE [Concomitant]
     Active Substance: AMIODARONE
  22. METOPROLOL [Concomitant]
     Active Substance: METOPROLOL

REACTIONS (4)
  - Acute respiratory failure [Recovering/Resolving]
  - Cardiac failure congestive [Recovering/Resolving]
  - Gastrointestinal haemorrhage [None]
  - Haemoglobin decreased [None]

NARRATIVE: CASE EVENT DATE: 20240305
